FAERS Safety Report 5328369-4 (Version None)
Quarter: 2007Q2

REPORT INFORMATION
  Report Type: 
  Country: None (occurrence: None)
  Receive Date: 20070515
  Receipt Date: 20070515
  Transmission Date: 20071010
  Serious: Yes (Other)
  Sender: FDA-Public Use
  Company Number: None

PATIENT
  Age: 43 Year
  Sex: Female
  Weight: 56.6996 kg

DRUGS (2)
  1. EVISTA [Suspect]
     Indication: BREAST CANCER
     Dosage: 60 MGS DAILY PO
     Route: 048
     Dates: start: 20061011, end: 20070511
  2. EVISTA [Suspect]
     Indication: NEOPLASM PROPHYLAXIS
     Dosage: 60 MGS DAILY PO
     Route: 048
     Dates: start: 20061011, end: 20070511

REACTIONS (4)
  - ARTHRITIS [None]
  - FLATULENCE [None]
  - INSOMNIA [None]
  - WEIGHT INCREASED [None]
